FAERS Safety Report 8214125-6 (Version None)
Quarter: 2012Q1

REPORT INFORMATION
  Report Type: 
  Country: None (occurrence: None)
  Receive Date: 20120314
  Receipt Date: 20120314
  Transmission Date: 20120608
  Serious: Yes (Hospitalization)
  Sender: FDA-Public Use
  Company Number: None

PATIENT
  Age: 80 Year
  Sex: Male
  Weight: 61.1 kg

DRUGS (12)
  1. SIMVASTATIN [Concomitant]
  2. UBIQUINONE [Concomitant]
  3. VIT C [Concomitant]
  4. CYCLOBENZAPRINE HCL [Concomitant]
  5. LISINOPRIL [Concomitant]
  6. M.V.I. [Concomitant]
  7. HYDROCODONE BITARTRATE AND ACETAMINOPHEN [Concomitant]
  8. GEMFIBROZIL [Concomitant]
  9. PLAVIX [Suspect]
     Indication: CORONARY ARTERY DISEASE
     Dosage: 75MG EOD PO CHRONIC
     Route: 048
  10. PLAVIX [Suspect]
     Indication: CORONARY ARTERY BYPASS
     Dosage: 75MG EOD PO CHRONIC
     Route: 048
  11. METOPROLOL SUCCINATE [Concomitant]
  12. CALCIUM CARBONATE [Concomitant]

REACTIONS (2)
  - GASTRIC HAEMORRHAGE [None]
  - DUODENAL ULCER [None]
